FAERS Safety Report 7606652-7 (Version None)
Quarter: 2011Q3

REPORT INFORMATION
  Report Type: 
  Country: None (occurrence: None)
  Receive Date: 20110705
  Receipt Date: 20110622
  Transmission Date: 20111222
  Serious: Yes (Other)
  Sender: FDA-Public Use
  Company Number: 2011SP029186

PATIENT
  Age: 52 Year
  Sex: Female
  Weight: 55 kg

DRUGS (1)
  1. DESLORATADINE [Suspect]
     Indication: SEASONAL ALLERGY
     Dosage: 5 MG;QD
     Dates: start: 20110603, end: 20110604

REACTIONS (3)
  - EYE SWELLING [None]
  - ACTIVITIES OF DAILY LIVING IMPAIRED [None]
  - VISUAL IMPAIRMENT [None]
